FAERS Safety Report 12320994 (Version 1)
Quarter: 2016Q2

REPORT INFORMATION
  Report Type: Report from Study
  Country: GB (occurrence: GB)
  Receive Date: 20160502
  Receipt Date: 20160502
  Transmission Date: 20160815
  Serious: Yes (Disabling)
  Sender: FDA-Public Use
  Company Number: GB-ROCHE-1749404

PATIENT
  Sex: Female
  Weight: 44 kg

DRUGS (1)
  1. RITUXIMAB [Suspect]
     Active Substance: RITUXIMAB
     Indication: RHEUMATOID ARTHRITIS
     Route: 042
     Dates: start: 20120327, end: 20130522

REACTIONS (3)
  - Fall [Unknown]
  - Neurological symptom [Unknown]
  - Radius fracture [Unknown]

NARRATIVE: CASE EVENT DATE: 20130820
